FAERS Safety Report 21977844 (Version 1)
Quarter: 2023Q1

REPORT INFORMATION
  Report Type: Spontaneous
  Country: NL (occurrence: None)
  Receive Date: 20230210
  Receipt Date: 20230210
  Transmission Date: 20230417
  Serious: Yes (Life-Threatening, Hospitalization)
  Sender: FDA-Public Use
  Company Number: 2023A033517

PATIENT
  Sex: Female

DRUGS (3)
  1. QUETIAPINE [Suspect]
     Active Substance: QUETIAPINE
     Indication: Depression
     Dosage: 1 X PER DAY 1 PIECE25.0MG UNKNOWN
     Dates: start: 19850101, end: 20221202
  2. PROZAC [Suspect]
     Active Substance: FLUOXETINE HYDROCHLORIDE
     Indication: Depression
     Dosage: 1 X PER DAY 1 PIECE
     Dates: start: 19850101, end: 20221202
  3. METOCLOPRAMIDE [Suspect]
     Active Substance: METOCLOPRAMIDE
     Indication: Nausea
     Dosage: 2 X PER DAY 1 PIECE
     Dates: start: 20221122, end: 20221202

REACTIONS (1)
  - Torsade de pointes [Recovered/Resolved]
